FAERS Safety Report 9154152 (Version 1)
Quarter: 2013Q1

REPORT INFORMATION
  Report Type: Spontaneous
  Country: US (occurrence: None)
  Receive Date: 20130308
  Receipt Date: 20130308
  Transmission Date: 20140127
  Serious: Yes (Other)
  Sender: FDA-Public Use
  Company Number: None

PATIENT
  Age: 66 Year
  Sex: Female
  Weight: 106.14 kg

DRUGS (2)
  1. NEXIUM [Suspect]
     Indication: GASTROOESOPHAGEAL REFLUX DISEASE
     Dosage: 40 MG. CAPSULE  1 A DAY?FEB. 11-13 - PRESENT 3-1-
     Dates: start: 20130211
  2. HYDROCODON\ACETAMINOPHEN [Suspect]
     Indication: ARTHRITIS
     Dosage: 5-500 TABLET EVERY 12HR.?FEB. 19 - FEB 24, 2013
     Dates: start: 20130219, end: 20130224

REACTIONS (2)
  - Product quality issue [None]
  - Drug ineffective [None]
